FAERS Safety Report 9512358 (Version 1)
Quarter: 2013Q3

REPORT INFORMATION
  Report Type: Spontaneous
  Country: US (occurrence: US)
  Receive Date: 20130910
  Receipt Date: 20130910
  Transmission Date: 20140515
  Serious: No
  Sender: FDA-Public Use
  Company Number: -SAAVPROD-BMS19055110

PATIENT
  Age: 44 Year
  Sex: Male

DRUGS (1)
  1. AVAPRO TABS 150 MG [Suspect]
     Indication: BLOOD PRESSURE
     Dosage: MARKING : 2872, 2772
     Dates: start: 1998

REACTIONS (2)
  - Myalgia [Unknown]
  - Arthralgia [Unknown]
